FAERS Safety Report 5290494-4 (Version None)
Quarter: 2007Q1

REPORT INFORMATION
  Report Type: 
  Country: None (occurrence: None)
  Receive Date: 20070312
  Receipt Date: 20070312
  Transmission Date: 20070707
  Serious: No
  Sender: FDA-Public Use
  Company Number: None

PATIENT
  Age: 80 Year
  Sex: Male

DRUGS (2)
  1. LANOXIN [Suspect]
     Dosage: TABLET  VIAL SMALL RX VIAL - APX 11TO 16 DRA
  2. NORVASC [Suspect]
     Dosage: TABLET  VIAL SMALL - APX 11-16 DRAM

REACTIONS (7)
  - FATIGUE [None]
  - MALAISE [None]
  - MEDICATION ERROR [None]
  - MOVEMENT DISORDER [None]
  - OEDEMA PERIPHERAL [None]
  - PALPITATIONS [None]
  - WRONG DRUG ADMINISTERED [None]
